FAERS Safety Report 20708767 (Version 1)
Quarter: 2022Q2

REPORT INFORMATION
  Report Type: Report from Study
  Country: GB (occurrence: GB)
  Receive Date: 20220414
  Receipt Date: 20220414
  Transmission Date: 20220721
  Serious: Yes (Life-Threatening, Hospitalization)
  Sender: FDA-Public Use
  Company Number: GB-SAMSUNG BIOEPIS-SB-2022-06608

PATIENT
  Age: 80 Year
  Sex: Male

DRUGS (3)
  1. ETANERCEPT [Suspect]
     Active Substance: ETANERCEPT
     Indication: Rheumatoid arthritis
     Route: 058
     Dates: start: 20220225
  2. BUTRANS [Suspect]
     Active Substance: BUPRENORPHINE
     Indication: Analgesic therapy
     Dosage: UNKNOWN, MORPHINE-BASED PAIN RELIEF PATCHES
     Route: 065
  3. BUPRENORPHINE [Suspect]
     Active Substance: BUPRENORPHINE
     Indication: Analgesic therapy
     Dosage: UNKNOWN, PATCH
     Route: 062

REACTIONS (12)
  - Anaemia [Recovering/Resolving]
  - Hospitalisation [Unknown]
  - Rheumatoid arthritis [Unknown]
  - Withdrawal syndrome [Unknown]
  - Mobility decreased [Unknown]
  - Skin irritation [Unknown]
  - Pruritus [Not Recovered/Not Resolved]
  - Rash [Unknown]
  - Rash erythematous [Unknown]
  - Erythema [Unknown]
  - Scratch [Unknown]
  - Therapeutic product effect incomplete [Unknown]
